FAERS Safety Report 6040813-6 (Version None)
Quarter: 2009Q1

REPORT INFORMATION
  Report Type: 
  Country: None (occurrence: None)
  Receive Date: 20090116
  Receipt Date: 20080627
  Transmission Date: 20090719
  Serious: No
  Sender: FDA-Public Use
  Company Number: US-BRISTOL-MYERS SQUIBB COMPANY-14214480

PATIENT
  Age: 14 Year
  Sex: Male

DRUGS (4)
  1. ABILIFY [Suspect]
     Indication: BIPOLAR DISORDER
     Route: 048
     Dates: start: 20070510
  2. ADVAIR DISKUS 100/50 [Concomitant]
     Route: 055
  3. ALBUTEROL [Concomitant]
     Route: 055
  4. SINGULAIR [Concomitant]

REACTIONS (1)
  - DRUG SCREEN FALSE POSITIVE [None]
